FAERS Safety Report 5534625-7 (Version None)
Quarter: 2007Q4

REPORT INFORMATION
  Report Type: 
  Country: None (occurrence: None)
  Receive Date: 20071205
  Receipt Date: 20071126
  Transmission Date: 20080405
  Serious: Yes (Hospitalization)
  Sender: FDA-Public Use
  Company Number: IT-WYE-H01393107

PATIENT
  Sex: Female

DRUGS (6)
  1. PEPTAZOL [Suspect]
     Indication: PROPHYLAXIS
     Route: 048
     Dates: start: 20071024, end: 20071107
  2. ZYLORIC [Concomitant]
     Dosage: UNKNOWN
     Route: 065
  3. VECLAM [Concomitant]
     Dosage: DF
     Route: 065
     Dates: start: 20071011, end: 20071107
  4. FLAMINASE [Concomitant]
     Dosage: DF
     Route: 065
     Dates: start: 20071011, end: 20071107
  5. ARCOXIA [Suspect]
     Indication: OSTEOARTHRITIS
     Route: 048
     Dates: start: 20071024, end: 20071107
  6. CIPROXIN [Concomitant]
     Dosage: DF
     Route: 065
     Dates: start: 20071015, end: 20071107

REACTIONS (3)
  - RASH ERYTHEMATOUS [None]
  - RASH MACULAR [None]
  - RASH MORBILLIFORM [None]
